FAERS Safety Report 4636360-6 (Version None)
Quarter: 2005Q2

REPORT INFORMATION
  Report Type: 
  Country: None (occurrence: None)
  Receive Date: 20050415
  Receipt Date: 20050128
  Transmission Date: 20051028
  Serious: No
  Sender: FDA-Public Use
  Company Number: US-BRISTOL-MYERS SQUIBB COMPANY-12841821

PATIENT
  Age: 54 Year
  Sex: Female
  Weight: 79 kg

DRUGS (10)
  1. PARAPLATIN [Suspect]
     Indication: BREAST CANCER METASTATIC
     Route: 042
     Dates: start: 20041013
  2. DECADRON [Concomitant]
  3. KYTRIL [Concomitant]
  4. TAGAMET [Concomitant]
  5. GEMZAR [Concomitant]
  6. IRON [Concomitant]
  7. CLONIDINE [Concomitant]
  8. THIAZIDE [Concomitant]
  9. IBUPROFEN [Concomitant]
  10. CEFTIN [Concomitant]

REACTIONS (1)
  - CYANOSIS [None]
